FAERS Safety Report 7773105-5 (Version None)
Quarter: 2011Q3

REPORT INFORMATION
  Report Type: 
  Country: None (occurrence: None)
  Receive Date: 20110922
  Receipt Date: 20100824
  Transmission Date: 20111222
  Serious: No
  Sender: FDA-Public Use
  Company Number: US-ASTRAZENECA-2008UW04285

PATIENT
  Age: 39 Year
  Sex: Male
  Weight: 83 kg

DRUGS (5)
  1. HALDOL [Concomitant]
  2. SEROQUEL [Suspect]
     Dosage: 200-300 MG
     Route: 048
     Dates: start: 20050324
  3. SEROQUEL [Suspect]
     Route: 048
     Dates: start: 20050127, end: 20071225
  4. SEROQUEL [Suspect]
     Indication: DEPRESSION
     Dosage: 100 MG TO 200 MG
     Route: 048
     Dates: start: 20040601, end: 20050801
  5. ZYPREXA [Concomitant]
     Indication: AFFECTIVE DISORDER
     Dates: start: 20021216, end: 20030319

REACTIONS (5)
  - DIABETIC COMPLICATION [None]
  - DIABETES MELLITUS [None]
  - GLUCOSE TOLERANCE IMPAIRED [None]
  - WEIGHT INCREASED [None]
  - CARDIAC DISORDER [None]
